FAERS Safety Report 7503637-6 (Version None)
Quarter: 2011Q2

REPORT INFORMATION
  Report Type: 
  Country: None (occurrence: None)
  Receive Date: 20110524
  Receipt Date: 20110524
  Transmission Date: 20111010
  Serious: Yes (Disabling, Other)
  Sender: FDA-Public Use
  Company Number: None

PATIENT
  Sex: Male
  Weight: 88.905 kg

DRUGS (1)
  1. DIANABOL [Suspect]
     Dosage: 10MG DAILY PO
     Route: 048
     Dates: start: 19710101, end: 19760101

REACTIONS (2)
  - BONE DENSITY ABNORMAL [None]
  - BONE DISORDER [None]
